FAERS Safety Report 7605669-6 (Version None)
Quarter: 2011Q3

REPORT INFORMATION
  Report Type: 
  Country: None (occurrence: None)
  Receive Date: 20110705
  Receipt Date: 20110620
  Transmission Date: 20111222
  Serious: Yes (Life-Threatening)
  Sender: FDA-Public Use
  Company Number: TCI2011A03632

PATIENT
  Age: 81 Year
  Sex: Male

DRUGS (4)
  1. OZAGREL SODIUM [Concomitant]
  2. FASUDIL HYDROCHLORIDE [Concomitant]
  3. AMARYL [Concomitant]
  4. ACTOS [Suspect]
     Indication: DIABETES MELLITUS
     Dosage: 15 MG (15 MG, 1 D), PER ORAL
     Route: 048
     Dates: start: 20090313, end: 20110619

REACTIONS (1)
  - BLADDER CANCER [None]
